FAERS Safety Report 8539426-3 (Version None)
Quarter: 2012Q3

REPORT INFORMATION
  Report Type: 
  Country: None (occurrence: None)
  Receive Date: 20120726
  Receipt Date: 20120706
  Transmission Date: 20120928
  Serious: No
  Sender: FDA-Public Use
  Company Number: US-009507513-2012SP030355

PATIENT

DRUGS (6)
  1. PROBIOTICS (UNSPECIFIED) [Concomitant]
     Dosage: UNK UNK, UNKNOWN
     Route: 048
  2. BOCEPREVIR [Suspect]
     Dosage: 800 MG, TID
     Route: 048
  3. PEG-INTRON [Suspect]
     Dosage: 150 MICROGRAM, UNK
     Route: 058
  4. PRILOSEC [Concomitant]
     Dosage: 20 MG, UNKNOWN
     Route: 048
  5. RIBAVIRIN [Suspect]
     Dosage: 1200 UNK, QD
     Route: 048
  6. CYANOCOBALAMIN [Concomitant]
     Dosage: 100 ?G, UNKNOWN
     Route: 048

REACTIONS (5)
  - DYSGEUSIA [None]
  - INFLUENZA LIKE ILLNESS [None]
  - VISUAL IMPAIRMENT [None]
  - FATIGUE [None]
  - ANAEMIA [None]
